FAERS Safety Report 9450079 (Version 1)
Quarter: 2013Q3

REPORT INFORMATION
  Report Type: Spontaneous
  Country: US (occurrence: US)
  Receive Date: 20130809
  Receipt Date: 20130809
  Transmission Date: 20140515
  Serious: No
  Sender: FDA-Public Use
  Company Number: US-AMGEN-USASP2013008254

PATIENT
  Age: 91 Year
  Sex: Male
  Weight: 82.09 kg

DRUGS (2)
  1. NPLATE [Suspect]
     Indication: CHRONIC LYMPHOCYTIC LEUKAEMIA
     Dosage: UNK UNK, QWK
     Route: 058
     Dates: start: 20111205
  2. RITUXAN [Concomitant]
     Indication: CHRONIC LYMPHOCYTIC LEUKAEMIA
     Dosage: UNK

REACTIONS (7)
  - Rash [Unknown]
  - Dermatitis acneiform [Unknown]
  - Rash pruritic [Unknown]
  - Haemorrhage [Unknown]
  - Epistaxis [Not Recovered/Not Resolved]
  - Laceration [Unknown]
  - Scratch [Unknown]
